FAERS Safety Report 5867251-0 (Version None)
Quarter: 2008Q3

REPORT INFORMATION
  Report Type: 
  Country: None (occurrence: None)
  Receive Date: 20080902
  Receipt Date: 20080731
  Transmission Date: 20090109
  Serious: Yes (Hospitalization)
  Sender: FDA-Public Use
  Company Number: US-MERCK-0808USA00195

PATIENT
  Age: 75 Year
  Sex: Female

DRUGS (6)
  1. ZOCOR [Suspect]
     Route: 048
  2. VYTORIN [Suspect]
     Route: 048
  3. ERLOTINIB HYDROCHLORIDE [Suspect]
     Route: 065
  4. ASPIRIN [Concomitant]
     Route: 065
  5. ATENOLOL [Concomitant]
     Route: 065
  6. AMLODIPINE BESYLATE [Concomitant]
     Route: 065

REACTIONS (3)
  - DRUG INTERACTION [None]
  - HEPATOTOXICITY [None]
  - RHABDOMYOLYSIS [None]
